FAERS Safety Report 4750989-6 (Version None)
Quarter: 2005Q3

REPORT INFORMATION
  Report Type: 
  Country: None (occurrence: None)
  Receive Date: 20050822
  Receipt Date: 20050809
  Transmission Date: 20060218
  Serious: Yes (Other)
  Sender: FDA-Public Use
  Company Number: 2005103881

PATIENT
  Age: 45 Year
  Sex: Female
  Weight: 77.1115 kg

DRUGS (5)
  1. BENADRYL [Suspect]
     Indication: HYPERSENSITIVITY
     Dosage: ONE KAPSEAL EVERY 4 HOURS, ORAL
     Route: 048
     Dates: start: 20000101
  2. LEVOTHYROXINE SODIUM [Concomitant]
  3. CYANOCOBALAMIN [Concomitant]
  4. PAROXETINE HCL [Concomitant]
  5. CALCIUM (CALCIUM) [Concomitant]

REACTIONS (6)
  - DIZZINESS [None]
  - DYSPNOEA [None]
  - EAR DISCOMFORT [None]
  - EYELID OEDEMA [None]
  - SWELLING FACE [None]
  - SWOLLEN TONGUE [None]
